FAERS Safety Report 4596565-X (Version None)
Quarter: 2005Q1

REPORT INFORMATION
  Report Type: 
  Country: None (occurrence: None)
  Receive Date: 20050228
  Receipt Date: 20050211
  Transmission Date: 20050727
  Serious: Yes (Death)
  Sender: FDA-Public Use
  Company Number: 10264

PATIENT
  Age: 73 Year
  Sex: Female

DRUGS (6)
  1. LEUCOVORIN CALCIUM [Suspect]
     Indication: COLON CANCER
     Dosage: 150 MG WEEKLY, IV
     Route: 042
     Dates: start: 20050104, end: 20050125
  2. FLUOROURACIL [Suspect]
     Indication: COLON CANCER
     Dosage: 840 MG WEEKLY, IV
     Route: 042
     Dates: start: 20050104, end: 20050125
  3. FOLINIC ACID [Concomitant]
  4. LOPERAMIDE HCL [Concomitant]
  5. HYOSCINE HBR HYT [Concomitant]
  6. NYSTATIN [Concomitant]

REACTIONS (4)
  - HYPOVOLAEMIC SHOCK [None]
  - METABOLIC ACIDOSIS [None]
  - NECROTISING COLITIS [None]
  - RENAL FAILURE [None]
